FAERS Safety Report 9778628 (Version 2)
Quarter: 2014Q1

REPORT INFORMATION
  Report Type: Spontaneous
  Country: US (occurrence: US)
  Receive Date: 20131223
  Receipt Date: 20140106
  Transmission Date: 20141002
  Serious: Yes (Other)
  Sender: FDA-Public Use
  Company Number: US-RB-061352-13

PATIENT
  Age: 48 Year
  Sex: Female

DRUGS (1)
  1. MUCINEX D MAXIMUM STRENGTH [Suspect]
     Indication: PRODUCT USED FOR UNKNOWN INDICATION
     Dosage: AMOUNT USED: 5 TABLETS
     Route: 048
     Dates: start: 20131206

REACTIONS (6)
  - Anxiety [Recovered/Resolved]
  - Hyperhidrosis [Recovered/Resolved]
  - Panic reaction [Recovered/Resolved]
  - Pallor [Recovered/Resolved]
  - Hallucination [Recovered/Resolved]
  - Nausea [Recovered/Resolved]
